FAERS Safety Report 9820592 (Version 1)
Quarter: 2013Q4

REPORT INFORMATION
  Report Type: Spontaneous
  Country: US (occurrence: None)
  Receive Date: 20131028
  Receipt Date: 20131028
  Transmission Date: 20140711
  Serious: Yes (Other)
  Sender: FDA-Public Use
  Company Number: 2013US001752

PATIENT
  Age: 59 Year
  Sex: Female
  Weight: 61 kg

DRUGS (4)
  1. ICLUSIG [Suspect]
     Indication: CHRONIC MYELOID LEUKAEMIA
     Route: 048
     Dates: start: 20130105
  2. ACYCLOVIR [Concomitant]
  3. PERCOCET (OXYCODONE HYDROCHLORIDE, PARACETAMOL) [Concomitant]
  4. TUMS (CALCIUM CARBONATE, MAGNESIUM CARBONATE) [Concomitant]

REACTIONS (4)
  - Gastrooesophageal reflux disease [None]
  - Pelvic inflammatory disease [None]
  - Inflammation [None]
  - Diarrhoea [None]
